FAERS Safety Report 5130038-0 (Version None)
Quarter: 2006Q4

REPORT INFORMATION
  Report Type: 
  Country: None (occurrence: None)
  Receive Date: 20061018
  Receipt Date: 20060825
  Transmission Date: 20070319
  Serious: Yes (Hospitalization)
  Sender: FDA-Public Use
  Company Number: US-MERCK-0608USA06179

PATIENT
  Age: 13 Year
  Sex: Male
  Weight: 45 kg

DRUGS (2)
  1. INVANZ [Suspect]
     Indication: OSTEOMYELITIS
     Route: 042
     Dates: start: 20060601, end: 20060707
  2. INVANZ [Suspect]
     Indication: ARTHRITIS INFECTIVE
     Route: 042
     Dates: start: 20060601, end: 20060707

REACTIONS (3)
  - ARTHRITIS INFECTIVE [None]
  - DRUG INEFFECTIVE [None]
  - OSTEOMYELITIS [None]
